FAERS Safety Report 18756073 (Version 1)
Quarter: 2021Q1

REPORT INFORMATION
  Report Type: Spontaneous
  Country: US (occurrence: US)
  Receive Date: 20210116
  Receipt Date: 20210116
  Transmission Date: 20210419
  Serious: No
  Sender: FDA-Public Use
  Company Number: None

PATIENT
  Age: 29 Year
  Sex: Female

DRUGS (8)
  1. L?THEANINE [Concomitant]
     Active Substance: DIETARY SUPPLEMENT
  2. VITAMIN D3 [Concomitant]
     Active Substance: CHOLECALCIFEROL
  3. VITAMIN B6 [Concomitant]
     Active Substance: PYRIDOXINE HYDROCHLORIDE
  4. LEVOTHYROXINE. [Concomitant]
     Active Substance: LEVOTHYROXINE
  5. OMEGA 3 [Concomitant]
     Active Substance: OMEGA-3 FATTY ACIDS
  6. METHYLPHENIDATE ER 27 MG, COMMON BRAND: CONCERTA, MFR: TRIGEN LABORATO [Suspect]
     Active Substance: METHYLPHENIDATE
     Indication: ATTENTION DEFICIT HYPERACTIVITY DISORDER
     Dosage: ?          QUANTITY:1 TABLET(S);?
     Route: 048
  7. MAGNESIUM [Concomitant]
     Active Substance: MAGNESIUM
  8. APRI [Concomitant]
     Active Substance: DESOGESTREL\ETHINYL ESTRADIOL

REACTIONS (7)
  - Adverse drug reaction [None]
  - Heart rate increased [None]
  - Crying [None]
  - Headache [None]
  - Drug ineffective [None]
  - Irritability [None]
  - Therapeutic product effect variable [None]

NARRATIVE: CASE EVENT DATE: 20210115
